FAERS Safety Report 4819562-5 (Version None)
Quarter: 2005Q4

REPORT INFORMATION
  Report Type: 
  Country: None (occurrence: None)
  Receive Date: 20051103
  Receipt Date: 20051012
  Transmission Date: 20060501
  Serious: Yes (Other)
  Sender: FDA-Public Use
  Company Number: PHBS2005JP15222

PATIENT
  Age: 80 Year
  Sex: Female

DRUGS (4)
  1. DIOVAN [Suspect]
     Indication: HYPERTENSION
     Dosage: 20 MG, QD
     Route: 048
     Dates: start: 20050611
  2. DIOVAN [Suspect]
     Dosage: 40 MG, QD
     Route: 048
  3. DIOVAN [Suspect]
     Dosage: 60 MG, QD
     Route: 048
     Dates: end: 20050920
  4. FELODIPINE [Suspect]
     Route: 048
     Dates: start: 20050611, end: 20050920

REACTIONS (9)
  - ALANINE AMINOTRANSFERASE INCREASED [None]
  - ASPARTATE AMINOTRANSFERASE INCREASED [None]
  - BACK PAIN [None]
  - BILE DUCT STONE [None]
  - BLOOD ALKALINE PHOSPHATASE INCREASED [None]
  - BLOOD LACTATE DEHYDROGENASE INCREASED [None]
  - HEADACHE [None]
  - LIVER DISORDER [None]
  - MALAISE [None]
